FAERS Safety Report 12059672 (Version 2)
Quarter: 2016Q1

REPORT INFORMATION
  Report Type: Spontaneous
  Country: GR (occurrence: GR)
  Receive Date: 20160210
  Receipt Date: 20160303
  Transmission Date: 20160526
  Serious: Yes (Other)
  Sender: FDA-Public Use
  Company Number: GR-TEVA-631002ISR

PATIENT
  Age: 44 Year
  Sex: Female

DRUGS (12)
  1. FASLODEX [Suspect]
     Active Substance: FULVESTRANT
     Indication: INVASIVE DUCTAL BREAST CARCINOMA
     Dates: start: 201502, end: 201512
  2. DOCETAXEL. [Suspect]
     Active Substance: DOCETAXEL
     Indication: INVASIVE DUCTAL BREAST CARCINOMA
  3. CAPECITABINE. [Suspect]
     Active Substance: CAPECITABINE
     Indication: INVASIVE DUCTAL BREAST CARCINOMA
     Dates: end: 201411
  4. 5 FU [Suspect]
     Active Substance: FLUOROURACIL
     Indication: INVASIVE DUCTAL BREAST CARCINOMA
  5. GOSERELINE [Suspect]
     Active Substance: GOSERELIN
     Indication: INVASIVE DUCTAL BREAST CARCINOMA
     Dosage: 10.8 MG, CYCLIC (EVERY 12 WEEKS)
     Dates: start: 201003
  6. ANASTROZOLE. [Suspect]
     Active Substance: ANASTROZOLE
     Indication: INVASIVE DUCTAL BREAST CARCINOMA
     Dosage: 1 MG
     Dates: start: 201003
  7. METHOTREXATE SODIUM. [Suspect]
     Active Substance: METHOTREXATE SODIUM
     Indication: INVASIVE DUCTAL BREAST CARCINOMA
  8. CABAZITAXEL [Suspect]
     Active Substance: CABAZITAXEL
     Indication: INVASIVE DUCTAL BREAST CARCINOMA
  9. CYCLOPHOSPHAMIDE. [Suspect]
     Active Substance: CYCLOPHOSPHAMIDE
     Indication: INVASIVE DUCTAL BREAST CARCINOMA
  10. TAMOXIFEN CITRATE. [Suspect]
     Active Substance: TAMOXIFEN CITRATE
     Indication: INVASIVE DUCTAL BREAST CARCINOMA
  11. ADRIAMYCIN [Suspect]
     Active Substance: DOXORUBICIN HYDROCHLORIDE
     Indication: INVASIVE DUCTAL BREAST CARCINOMA
  12. PACLITAXEL. [Suspect]
     Active Substance: PACLITAXEL
     Indication: INVASIVE DUCTAL BREAST CARCINOMA

REACTIONS (2)
  - Invasive ductal breast carcinoma [Unknown]
  - Disease progression [Unknown]

NARRATIVE: CASE EVENT DATE: 200909
